FAERS Safety Report 7476394-X (Version None)
Quarter: 2011Q2

REPORT INFORMATION
  Report Type: 
  Country: None (occurrence: None)
  Receive Date: 20110512
  Receipt Date: 20110504
  Transmission Date: 20111010
  Serious: Yes (Hospitalization)
  Sender: FDA-Public Use
  Company Number: B0718547A

PATIENT
  Sex: Male

DRUGS (2)
  1. DEXAMETHASONE [Suspect]
  2. PAZOPANIB [Suspect]
     Indication: METASTATIC RENAL CELL CARCINOMA
     Dosage: 800MG PER DAY

REACTIONS (1)
  - HYPERGLYCAEMIA [None]
